FAERS Safety Report 8756152 (Version 1)
Quarter: 2012Q4

REPORT INFORMATION
  Report Type: Report from Study
  Country: CA (occurrence: CA)
  Receive Date: 20120828
  Receipt Date: 20120828
  Transmission Date: 20130627
  Serious: Yes (Other)
  Sender: FDA-Public Use
  Company Number: CA-JNJFOC-20120811566

PATIENT
  Age: 55 Year
  Sex: Male
  Weight: 107 kg

DRUGS (7)
  1. REMICADE [Suspect]
     Indication: COLITIS ULCERATIVE
     Route: 042
     Dates: start: 20120822
  2. REMICADE [Suspect]
     Indication: COLITIS ULCERATIVE
     Route: 042
     Dates: start: 20120203
  3. NOVOLIN N INSULIN [Concomitant]
     Route: 065
  4. NOVORAPID INSULIN [Concomitant]
     Route: 065
  5. SALOFALK [Concomitant]
     Route: 065
  6. UNSPECIFIED SUPPOSITORY [Concomitant]
     Route: 065
  7. METFORMIN [Concomitant]
     Route: 065

REACTIONS (9)
  - Dizziness [Recovering/Resolving]
  - Infusion related reaction [Recovering/Resolving]
  - Flushing [Recovering/Resolving]
  - Chest discomfort [Recovering/Resolving]
  - Dyspnoea [Recovering/Resolving]
  - Tremor [Recovering/Resolving]
  - Pain in extremity [Recovering/Resolving]
  - Tinnitus [Recovering/Resolving]
  - Hyperhidrosis [Recovering/Resolving]
